FAERS Safety Report 17442049 (Version 2)
Quarter: 2020Q1

REPORT INFORMATION
  Report Type: Spontaneous
  Country: US (occurrence: US)
  Receive Date: 20200220
  Receipt Date: 20200311
  Transmission Date: 20200409
  Serious: Yes (Other)
  Sender: FDA-Public Use
  Company Number: US-PFIZER INC-2020070010

PATIENT
  Age: 70 Year
  Sex: Male

DRUGS (2)
  1. XELJANZ [Suspect]
     Active Substance: TOFACITINIB CITRATE
     Dosage: 5 MG, 2X/DAY
     Route: 048
     Dates: start: 20191016, end: 20200306
  2. XELJANZ [Suspect]
     Active Substance: TOFACITINIB CITRATE
     Indication: COLITIS ULCERATIVE
     Dosage: 5 MG, 2X/DAY
     Route: 048
     Dates: start: 201912

REACTIONS (9)
  - Defaecation urgency [Unknown]
  - Frequent bowel movements [Unknown]
  - Influenza [Recovered/Resolved]
  - Joint swelling [Unknown]
  - Haematochezia [Unknown]
  - Peripheral swelling [Unknown]
  - Infection [Unknown]
  - Swelling face [Unknown]
  - Pyrexia [Unknown]
